FAERS Safety Report 25229824 (Version 1)
Quarter: 2025Q2

REPORT INFORMATION
  Report Type: Report from Study
  Country: US (occurrence: US)
  Receive Date: 20250423
  Receipt Date: 20250423
  Transmission Date: 20250716
  Serious: Yes (Hospitalization, Other)
  Sender: ALEXION PHARMACEUTICALS
  Company Number: US-AstraZeneca-CH-00850930A

PATIENT

DRUGS (1)
  1. TICAGRELOR [Suspect]
     Active Substance: TICAGRELOR
     Route: 065

REACTIONS (10)
  - Blood pressure increased [Unknown]
  - Haemorrhage [Unknown]
  - Rectal haemorrhage [Unknown]
  - Haemorrhage urinary tract [Unknown]
  - Osteoporosis [Unknown]
  - Nerve compression [Unknown]
  - Oesophageal ulcer perforation [Unknown]
  - Oesophageal ulcer haemorrhage [Unknown]
  - Dyspnoea [Unknown]
  - Skin disorder [Unknown]
